FAERS Safety Report 9703722 (Version 1)
Quarter: 2013Q4

REPORT INFORMATION
  Report Type: Spontaneous
  Country: GB (occurrence: GB)
  Receive Date: 20131122
  Receipt Date: 20131122
  Transmission Date: 20140711
  Serious: Yes (Hospitalization, Other)
  Sender: FDA-Public Use
  Company Number: GB-ELI_LILLY_AND_COMPANY-GB201311003975

PATIENT
  Age: 50 Year
  Sex: Male

DRUGS (1)
  1. ZYPADHERA [Suspect]
     Indication: SCHIZOPHRENIA
     Dosage: 1 DF, UNKNOWN
     Route: 065

REACTIONS (3)
  - Sedation [Recovered/Resolved]
  - Dysarthria [Recovered/Resolved]
  - Fall [Recovered/Resolved]
